FAERS Safety Report 7006439-2 (Version None)
Quarter: 2010Q3

REPORT INFORMATION
  Report Type: 
  Country: None (occurrence: None)
  Receive Date: 20100910
  Receipt Date: 20100907
  Transmission Date: 20110219
  Serious: Yes (Death)
  Sender: FDA-Public Use
  Company Number: 2010SP047799

PATIENT
  Age: 58 Year
  Sex: Female
  Weight: 86 kg

DRUGS (1)
  1. NOXAFIL [Suspect]
     Indication: PROPHYLAXIS
     Dosage: 200 MG;TID
     Dates: start: 20090304, end: 20090316

REACTIONS (4)
  - FUNGAL INFECTION [None]
  - PNEUMONIA [None]
  - RESPIRATORY FAILURE [None]
  - SEPSIS [None]
